FAERS Safety Report 9109038 (Version 2)
Quarter: 2013Q4

REPORT INFORMATION
  Report Type: Spontaneous
  Country: US (occurrence: US)
  Receive Date: 20130222
  Receipt Date: 20131014
  Transmission Date: 20140711
  Serious: Yes (Hospitalization)
  Sender: FDA-Public Use
  Company Number: US-UCBSA-078731

PATIENT
  Age: 4 Year
  Sex: Female
  Weight: 15.9 kg

DRUGS (6)
  1. LEVETIRACETAM [Suspect]
  2. H. P. ACTHAR GEL [Suspect]
     Indication: INFANTILE SPASMS
     Route: 058
     Dates: start: 20130108, end: 2013
  3. H. P. ACTHAR GEL [Suspect]
     Indication: INFANTILE SPASMS
     Dosage: TAPERED DAILY DOSE : 30 UNITS
     Route: 058
     Dates: start: 2013
  4. VIGABATRIN [Suspect]
  5. CLOBAZAM [Suspect]
  6. RANITIDINE HYDROCHLORIDE [Concomitant]

REACTIONS (3)
  - Constipation [Not Recovered/Not Resolved]
  - Abdominal distension [Unknown]
  - Lethargy [Not Recovered/Not Resolved]
